FAERS Safety Report 21409167 (Version 2)
Quarter: 2022Q4

REPORT INFORMATION
  Report Type: Spontaneous
  Country: PT (occurrence: PT)
  Receive Date: 20221004
  Receipt Date: 20221010
  Transmission Date: 20230113
  Serious: Yes (Death)
  Sender: FDA-Public Use
  Company Number: PT-009507513-2210PRT000284

PATIENT

DRUGS (2)
  1. LETERMOVIR [Suspect]
     Active Substance: LETERMOVIR
     Indication: Drug therapy
     Dosage: UNK
     Route: 048
  2. LETERMOVIR [Suspect]
     Active Substance: LETERMOVIR
     Indication: Prophylaxis

REACTIONS (2)
  - Disease progression [Fatal]
  - Off label use [Unknown]
